FAERS Safety Report 4968989-X (Version None)
Quarter: 2006Q2

REPORT INFORMATION
  Report Type: 
  Country: None (occurrence: None)
  Receive Date: 20060411
  Receipt Date: 20051205
  Transmission Date: 20061013
  Serious: Yes (Hospitalization, Disabling)
  Sender: FDA-Public Use
  Company Number: US-MERCK-0512USA00832

PATIENT
  Age: 63 Year
  Sex: Male
  Weight: 82 kg

DRUGS (11)
  1. PREVACID [Concomitant]
     Indication: GASTRIC DISORDER
     Route: 048
  2. FOLTX [Concomitant]
     Indication: HYPOVITAMINOSIS
     Route: 048
     Dates: start: 20011228, end: 20030604
  3. LIPITOR [Concomitant]
     Indication: BLOOD CHOLESTEROL INCREASED
     Route: 048
     Dates: start: 20000120
  4. CELEBREX [Concomitant]
     Indication: PAIN
     Route: 048
     Dates: start: 20000605, end: 20040730
  5. ALLEGRA [Concomitant]
     Indication: HYPERSENSITIVITY
     Route: 048
  6. DICYCLOMINE HYDROCHLORIDE [Concomitant]
     Indication: GASTRIC DISORDER
     Route: 048
  7. PROTONIX [Concomitant]
     Indication: GASTROOESOPHAGEAL REFLUX DISEASE
     Route: 048
  8. METOPROLOL-BC [Concomitant]
     Indication: HYPERTENSION
     Route: 048
  9. HYDROCORTISONE [Concomitant]
     Indication: ARTHRITIS
     Route: 065
  10. VIOXX [Suspect]
     Indication: ARTHRALGIA
     Route: 048
     Dates: start: 20000831, end: 20040801
  11. VIOXX [Suspect]
     Indication: ARTHRITIS
     Route: 048
     Dates: start: 20000831, end: 20040801

REACTIONS (5)
  - CARDIOVASCULAR DISORDER [None]
  - FALL [None]
  - FOLATE DEFICIENCY [None]
  - HYPOVITAMINOSIS [None]
  - MYOCARDIAL INFARCTION [None]
